FAERS Safety Report 8535473 (Version 3)
Quarter: 2012Q4

REPORT INFORMATION
  Report Type: 
  Country: US (occurrence: US)
  Receive Date: 20120430
  Receipt Date: 20121031
  Transmission Date: 20130627
  Serious: Yes (Hospitalization)
  Sender: FDA-Public Use
  Company Number: US-BAYER-2012-040182

PATIENT
  Age: 34 Year
  Sex: Female
  Weight: 81.63 kg

DRUGS (15)
  1. YASMIN [Suspect]
     Indication: CONTRACEPTION
     Dosage: UNK
     Dates: start: 2003, end: 2004
  2. YASMIN [Suspect]
     Indication: ACNE
  3. YASMIN [Suspect]
     Indication: PREMENSTRUAL DYSPHORIC DISORDER
  4. YASMIN [Suspect]
     Indication: PREMENSTRUAL SYNDROME
  5. DIOVAN [HYDROCHLOROTHIAZIDE,VALSARTAN] [Concomitant]
     Indication: BLOOD PRESSURE MANAGEMENT
     Dosage: 80mg / 12.5 mg daily
     Dates: start: 2002, end: 2004
  6. MULTIVITAMIN [Concomitant]
  7. DECADRON [Concomitant]
     Indication: INFLAMMATION
     Dosage: UNK
     Dates: start: 20040128, end: 20040202
  8. DECADRON [Concomitant]
     Indication: FOOT PAIN
  9. HYDROCODONE W/ACETAMINOPHEN [Concomitant]
     Indication: PAIN
     Dosage: 5/500 mg
  10. ATIVAN [Concomitant]
     Dosage: 0.5 mg, HS
     Route: 048
     Dates: start: 20040202
  11. LORTAB [Concomitant]
     Indication: PAIN
     Dosage: 5 mg 1 or 2 every 4-6 hour prn
     Dates: start: 20040202
  12. LISINOPRIL [Concomitant]
     Indication: BLOOD PRESSURE HIGH
     Dosage: UNK
     Dates: start: 2003
  13. VITAMIN C [Concomitant]
  14. VIOXX [Concomitant]
     Indication: PAIN
     Dosage: UNK
     Dates: start: 200401
  15. STEROIDS [Concomitant]

REACTIONS (8)
  - Deep vein thrombosis [None]
  - Lower extremity mass [None]
  - Injury [None]
  - Pain [None]
  - Emotional distress [None]
  - Pain in extremity [None]
  - Mental disorder [None]
  - Abasia [None]
